FAERS Safety Report 5086388-X (Version None)
Quarter: 2006Q3

REPORT INFORMATION
  Report Type: 
  Country: None (occurrence: None)
  Receive Date: 20060703
  Receipt Date: 20060317
  Transmission Date: 20061208
  Serious: No
  Sender: FDA-Public Use
  Company Number: 2006S1002351

PATIENT
  Age: 54 Year
  Sex: Female
  Weight: 85.2762 kg

DRUGS (4)
  1. CLOZAPINE [Suspect]
     Indication: SCHIZOAFFECTIVE DISORDER
     Dosage: 200 MG;BID;ORAL
     Route: 048
  2. PIOGLITAZONE HCL [Concomitant]
  3. FLUOXETINE HYDROCHLORIDE [Concomitant]
  4. VITAMINS NOS [Concomitant]

REACTIONS (2)
  - GRANULOCYTOPENIA [None]
  - LEUKOPENIA [None]
